FAERS Safety Report 17708115 (Version 1)
Quarter: 2020Q2

REPORT INFORMATION
  Report Type: Spontaneous
  Country: RO (occurrence: RO)
  Receive Date: 20200425
  Receipt Date: 20200425
  Transmission Date: 20200714
  Serious: Yes (Hospitalization)
  Sender: FDA-Public Use
  Company Number: RO-ROCHE-2584552

PATIENT
  Age: 48 Year

DRUGS (2)
  1. ROACTEMRA [Suspect]
     Active Substance: TOCILIZUMAB
     Dosage: 3 VIAL OF 200 MG
     Route: 065
  2. ROACTEMRA [Suspect]
     Active Substance: TOCILIZUMAB
     Indication: CORONAVIRUS INFECTION
     Dosage: 6 VIAL OF 2400
     Route: 065

REACTIONS (3)
  - Intentional product use issue [Unknown]
  - General physical health deterioration [Unknown]
  - Off label use [Unknown]
